FAERS Safety Report 5623146-9 (Version None)
Quarter: 2008Q1

REPORT INFORMATION
  Report Type: 
  Country: None (occurrence: None)
  Receive Date: 20080212
  Receipt Date: 20080129
  Transmission Date: 20080703
  Serious: Yes (Hospitalization)
  Sender: FDA-Public Use
  Company Number: CA-BAYER-200812256GPV

PATIENT
  Age: 52 Year
  Sex: Male

DRUGS (2)
  1. ASPIRIN [Suspect]
     Indication: PAIN MANAGEMENT
     Route: 065
  2. COUMADIN [Interacting]
     Indication: DEEP VEIN THROMBOSIS
     Dosage: AS USED: 5 MG
     Route: 065

REACTIONS (5)
  - AREFLEXIA [None]
  - BROWN-SEQUARD SYNDROME [None]
  - EXTRADURAL HAEMATOMA [None]
  - MUSCULAR WEAKNESS [None]
  - SENSORY LOSS [None]
